FAERS Safety Report 8916288 (Version 1)
Quarter: 2012Q4

REPORT INFORMATION
  Report Type: 
  Country: US (occurrence: US)
  Receive Date: 20121120
  Receipt Date: 20121120
  Transmission Date: 20130627
  Serious: No
  Sender: FDA-Public Use
  Company Number: US-MYLANLABS-2012S1006776

PATIENT
  Sex: Female

DRUGS (3)
  1. ALLOPURINOL TABLETS, USP [Suspect]
     Indication: GOUT
     Route: 048
     Dates: end: 201109
  2. ALLOPURINOL TABLETS, USP [Suspect]
     Indication: GOUT
     Route: 048
     Dates: start: 201109
  3. SIMVASTATIN [Concomitant]
     Indication: BLOOD CHOLESTEROL INCREASED

REACTIONS (3)
  - Dental caries [Not Recovered/Not Resolved]
  - Dry mouth [Not Recovered/Not Resolved]
  - Acne [Not Recovered/Not Resolved]
